FAERS Safety Report 13760034 (Version 1)
Quarter: 2017Q3

REPORT INFORMATION
  Report Type: Report from Study
  Country: FR (occurrence: FR)
  Receive Date: 20170717
  Receipt Date: 20170717
  Transmission Date: 20171127
  Serious: Yes (Hospitalization)
  Sender: FDA-Public Use
  Company Number: PHHY2016FR060040

PATIENT
  Age: 72 Year
  Sex: Female
  Weight: 74 kg

DRUGS (4)
  1. AFINITOR [Suspect]
     Active Substance: EVEROLIMUS
     Indication: INVASIVE DUCTAL BREAST CARCINOMA
     Dosage: 10 MG, QD
     Route: 048
     Dates: start: 20160126, end: 20160222
  2. AFINITOR [Suspect]
     Active Substance: EVEROLIMUS
     Dosage: 5 MG, QD
     Route: 048
     Dates: start: 20160223, end: 20160327
  3. EXEMESTANE. [Suspect]
     Active Substance: EXEMESTANE
     Indication: INVASIVE DUCTAL BREAST CARCINOMA
     Dosage: 25 MG, QD
     Route: 048
     Dates: start: 20160126, end: 20160327
  4. EXEMESTANE. [Suspect]
     Active Substance: EXEMESTANE
     Dosage: 25 MG, QD
     Route: 048
     Dates: start: 20160412

REACTIONS (9)
  - Lung disorder [Recovered/Resolved]
  - Dyspnoea [Unknown]
  - Pulmonary fibrosis [Unknown]
  - Tachypnoea [Unknown]
  - Pyrexia [Unknown]
  - Haemoglobin decreased [Unknown]
  - Stomatitis [Recovered/Resolved]
  - Bronchiectasis [Unknown]
  - Cough [Unknown]

NARRATIVE: CASE EVENT DATE: 20160215
